FAERS Safety Report 8796065 (Version 3)
Quarter: 2013Q2

REPORT INFORMATION
  Report Type: Report from Study
  Country: DE (occurrence: DE)
  Receive Date: 20120919
  Receipt Date: 20130429
  Transmission Date: 20140414
  Serious: Yes (Hospitalization, Other)
  Sender: FDA-Public Use
  Company Number: DE-ASTRAZENECA-2012SE60081

PATIENT
  Age: 29640 Day
  Sex: Male

DRUGS (11)
  1. AZD6140 [Suspect]
     Indication: CORONARY ARTERY DISEASE
     Route: 048
     Dates: start: 20111026, end: 20120810
  2. RAMIPRIL [Concomitant]
     Indication: HYPERTENSION
     Route: 048
     Dates: end: 20120808
  3. METFORMIN [Concomitant]
     Indication: TYPE 2 DIABETES MELLITUS
     Route: 048
     Dates: start: 20120530
  4. BISOPROLOL [Concomitant]
     Indication: HYPERTENSION
     Route: 048
  5. XIPAMID [Concomitant]
     Indication: HYPERTENSION
     Route: 048
     Dates: end: 20120808
  6. SIMVASTATIN [Concomitant]
     Indication: HYPERCHOLESTEROLAEMIA
     Route: 048
  7. BICATULAMID [Concomitant]
     Indication: BENIGN PROSTATIC HYPERPLASIA
     Route: 048
     Dates: start: 20120503, end: 20120808
  8. BICATULAMID [Concomitant]
     Indication: BENIGN PROSTATIC HYPERPLASIA
     Route: 048
     Dates: start: 20120810
  9. TAMSULUSIN [Concomitant]
     Indication: BENIGN PROSTATIC HYPERPLASIA
     Route: 048
     Dates: start: 20120503
  10. SPIRONOLACTON [Concomitant]
     Indication: HYPERTENSION
     Route: 048
     Dates: end: 20120808
  11. ASA [Concomitant]
     Route: 048

REACTIONS (2)
  - Gastric ulcer [Recovered/Resolved]
  - Prostate cancer [Not Recovered/Not Resolved]
